FAERS Safety Report 11401322 (Version 2)
Quarter: 2015Q3

REPORT INFORMATION
  Report Type: Spontaneous
  Country: US (occurrence: US)
  Receive Date: 20150820
  Receipt Date: 20150914
  Transmission Date: 20151125
  Serious: Yes (Hospitalization)
  Sender: FDA-Public Use
  Company Number: US-B.I. PHARMACEUTICALS,INC./RIDGEFIELD-2015-BI-45555BP

PATIENT
  Age: 65 Year
  Sex: Female

DRUGS (2)
  1. GILOTRIF [Suspect]
     Active Substance: AFATINIB
     Indication: EGFR GENE MUTATION
     Dosage: 20 MG
     Route: 048
     Dates: start: 2015
  2. GILOTRIF [Suspect]
     Active Substance: AFATINIB
     Indication: NON-SMALL CELL LUNG CANCER METASTATIC
     Dosage: 40 MG
     Route: 048
     Dates: start: 201408, end: 2015

REACTIONS (5)
  - Hypovolaemia [Unknown]
  - Diarrhoea [Unknown]
  - Renal failure [Recovered/Resolved]
  - Mucosal inflammation [Unknown]
  - Rash [Unknown]

NARRATIVE: CASE EVENT DATE: 201507
